FAERS Safety Report 12240153 (Version 1)
Quarter: 2016Q2

REPORT INFORMATION
  Report Type: Spontaneous
  Country: US (occurrence: US)
  Receive Date: 20160405
  Receipt Date: 20160405
  Transmission Date: 20160815
  Serious: No
  Sender: FDA-Public Use
  Company Number: US-TEVA-648227USA

PATIENT
  Age: 18 Month
  Sex: Male

DRUGS (1)
  1. PROAIR HFA [Suspect]
     Active Substance: ALBUTEROL SULFATE

REACTIONS (3)
  - Drug administered to patient of inappropriate age [Unknown]
  - Incorrect dose administered by device [Unknown]
  - Device malfunction [Unknown]
